FAERS Safety Report 7742670-6 (Version None)
Quarter: 2011Q3

REPORT INFORMATION
  Report Type: 
  Country: None (occurrence: None)
  Receive Date: 20110912
  Receipt Date: 20110831
  Transmission Date: 20111222
  Serious: Yes (Hospitalization)
  Sender: FDA-Public Use
  Company Number: CA-SANOFI-AVENTIS-2011SA052511

PATIENT
  Age: 30 Year
  Sex: Male
  Weight: 59 kg

DRUGS (3)
  1. XELODA [Suspect]
     Indication: RECTAL CANCER
     Route: 048
     Dates: start: 20110728
  2. OXALIPLATIN [Suspect]
     Indication: RECTAL CANCER
     Route: 042
     Dates: start: 20110727
  3. IRINOTECAN HCL [Suspect]
     Indication: RECTAL CANCER
     Route: 042
     Dates: start: 20110727

REACTIONS (7)
  - ABDOMINAL PAIN [None]
  - MUCOSAL INFLAMMATION [None]
  - NAUSEA [None]
  - DIARRHOEA [None]
  - DRUG ERUPTION [None]
  - VOMITING [None]
  - LIPASE INCREASED [None]
